FAERS Safety Report 25152626 (Version 1)
Quarter: 2025Q2

REPORT INFORMATION
  Report Type: Spontaneous
  Country: SI (occurrence: SI)
  Receive Date: 20250402
  Receipt Date: 20250402
  Transmission Date: 20250716
  Serious: Yes (Hospitalization)
  Sender: AMGEN
  Company Number: SI-AMGEN-SVNSP2025060915

PATIENT
  Sex: Female

DRUGS (5)
  1. PROLIA [Suspect]
     Active Substance: DENOSUMAB
     Indication: Product used for unknown indication
     Route: 065
     Dates: start: 20241202
  2. AMOXICILLIN [Concomitant]
     Active Substance: AMOXICILLIN
  3. EDOXABAN TOSYLATE [Concomitant]
     Active Substance: EDOXABAN TOSYLATE
  4. PANTOPRAZOLE SODIUM [Concomitant]
     Active Substance: PANTOPRAZOLE SODIUM
  5. VITAMIN D3 [Concomitant]
     Active Substance: CHOLECALCIFEROL
     Dosage: 7000GTT, QWK

REACTIONS (4)
  - Arthritis bacterial [Unknown]
  - Polyarthritis [Unknown]
  - Pleural effusion [Unknown]
  - Hereditary non-polyposis colorectal cancer syndrome [Unknown]
